FAERS Safety Report 24162264 (Version 1)
Quarter: 2024Q3

REPORT INFORMATION
  Report Type: Spontaneous
  Country: US (occurrence: None)
  Receive Date: 20240731
  Receipt Date: 20240731
  Transmission Date: 20241017
  Serious: Yes (Other)
  Sender: Public
  Company Number: None

PATIENT
  Sex: 0

DRUGS (1)
  1. ARIPIPRAZOLE [Suspect]
     Active Substance: ARIPIPRAZOLE
     Indication: Depression
     Dosage: OTHER QUANTITY : 30 TABLET(S);?FREQUENCY : AT BEDTIME;?
     Route: 048
     Dates: start: 20240529, end: 20240731

REACTIONS (6)
  - Dizziness [None]
  - Confusional state [None]
  - Depression [None]
  - Feeling abnormal [None]
  - Suicidal ideation [None]
  - Aphasia [None]

NARRATIVE: CASE EVENT DATE: 20240601
